FAERS Safety Report 26189841 (Version 1)
Quarter: 2025Q4

REPORT INFORMATION
  Report Type: Report from Study
  Country: CA (occurrence: CA)
  Receive Date: 20251223
  Receipt Date: 20251223
  Transmission Date: 20260117
  Serious: Yes (Other)
  Sender: ORION PHARMA
  Company Number: CA-PFIZER INC-202500246904

PATIENT
  Age: 78 Year
  Sex: Male
  Weight: 58.05 kg

DRUGS (1)
  1. METHOTREXATE [Suspect]
     Active Substance: METHOTREXATE
     Indication: Product used for unknown indication

REACTIONS (1)
  - Bronchiectasis [Unknown]
